FAERS Safety Report 18011269 (Version 1)
Quarter: 2020Q3

REPORT INFORMATION
  Report Type: Spontaneous
  Country: US (occurrence: US)
  Receive Date: 20200712
  Receipt Date: 20200712
  Transmission Date: 20201103
  Serious: No
  Sender: FDA-Public Use
  Company Number: US-BIOGEN-2020BI00895058

PATIENT
  Sex: Male

DRUGS (1)
  1. TECFIDERA [Suspect]
     Active Substance: DIMETHYL FUMARATE
     Indication: MULTIPLE SCLEROSIS
     Route: 065
     Dates: start: 20141125

REACTIONS (7)
  - Anxiety [Unknown]
  - Cognitive disorder [Unknown]
  - Paraesthesia [Unknown]
  - Product dose omission in error [Unknown]
  - Balance disorder [Unknown]
  - Visual impairment [Unknown]
  - Incoherent [Unknown]
